FAERS Safety Report 19230758 (Version 2)
Quarter: 2021Q2

REPORT INFORMATION
  Report Type: Report from Study
  Country: NO (occurrence: NO)
  Receive Date: 20210507
  Receipt Date: 20210514
  Transmission Date: 20210717
  Serious: Yes (Hospitalization, Other)
  Sender: FDA-Public Use
  Company Number: NO-PURDUE-USA-2021-0255166

PATIENT
  Age: 68 Year
  Sex: Female
  Weight: 61.7 kg

DRUGS (21)
  1. AERIUS (DESLORATADINE) [Concomitant]
     Active Substance: DESLORATADINE
     Dosage: UNK
     Dates: start: 202004
  2. MOVENTIG [Concomitant]
     Active Substance: NALOXEGOL OXALATE
     Dosage: UNK
     Dates: start: 20201208
  3. POSTAFEN                           /00072801/ [Concomitant]
     Indication: PROPHYLAXIS
     Dosage: UNK
     Dates: start: 20201228
  4. OXYCONTIN [Suspect]
     Active Substance: OXYCODONE HYDROCHLORIDE
     Dosage: 5 MG
     Dates: start: 20210320
  5. FLUDARABINE [Suspect]
     Active Substance: FLUDARABINE PHOSPHATE
     Indication: PLASMA CELL MYELOMA
     Dosage: 50 MG, DAILY
     Route: 042
     Dates: start: 20201231, end: 20210102
  6. RINGER?ACETAT [Concomitant]
     Dosage: UNK
     Dates: start: 20210107
  7. PIPERACILLIN/TAZOBACTAM [Concomitant]
     Active Substance: PIPERACILLIN SODIUM\TAZOBACTAM SODIUM
     Dosage: UNK
     Dates: start: 20210210, end: 20210215
  8. POSTAFEN                           /00072801/ [Concomitant]
     Dosage: UNK
     Dates: start: 20201223
  9. OXYCONTIN [Suspect]
     Active Substance: OXYCODONE HYDROCHLORIDE
     Dosage: 10 MG
     Dates: start: 20210306, end: 20210319
  10. TRIMETOPRIM + SULFAMETOXAZOL [Concomitant]
     Active Substance: SULFAMETHOXAZOLE\TRIMETHOPRIM
     Indication: INFECTION PROPHYLAXIS
     Dosage: UNK
     Dates: start: 20210105
  11. OMEGA 3                            /01334101/ [Concomitant]
     Active Substance: OMEGA-3 FATTY ACIDS
     Dosage: UNK
     Dates: start: 20210122
  12. CYCLOPHOSPHAMIDE. [Suspect]
     Active Substance: CYCLOPHOSPHAMIDE
     Indication: PLASMA CELL MYELOMA
     Dosage: 500 MG, DAILY
     Route: 042
     Dates: start: 20201231, end: 20210102
  13. LAKTULOSE [Concomitant]
     Active Substance: LACTULOSE
     Indication: PROPHYLAXIS
     Dosage: UNK
     Dates: start: 20191016
  14. VALTREX [Concomitant]
     Active Substance: VALACYCLOVIR HYDROCHLORIDE
     Indication: ANTIVIRAL PROPHYLAXIS
     Dosage: UNK
     Dates: start: 20210105
  15. OXYNORM [Suspect]
     Active Substance: OXYCODONE HYDROCHLORIDE
     Indication: PRODUCT USED FOR UNKNOWN INDICATION
     Dosage: UNK [STRENGTH 10 MG]
     Route: 048
     Dates: start: 20201211
  16. OXYCONTIN [Suspect]
     Active Substance: OXYCODONE HYDROCHLORIDE
     Indication: PRODUCT USED FOR UNKNOWN INDICATION
     Dosage: UNK [STRENGTH 30 MG]
     Route: 048
     Dates: start: 20210108, end: 20210305
  17. NYCOPLUS MULTI [Concomitant]
     Dosage: UNK
     Dates: start: 20210122
  18. CALCIGRAN FORTE [Concomitant]
     Active Substance: CALCIUM CARBONATE\CHOLECALCIFEROL
     Dosage: 1000 MG/ 800 IE, UNK
     Dates: start: 20160621
  19. LAXOBERAL [Concomitant]
     Active Substance: SODIUM PICOSULFATE
     Dosage: UNK
     Dates: start: 20201126
  20. FENAZON?KOFFEIN [Concomitant]
     Dosage: UNK
     Dates: start: 20210105
  21. SOMAC [Concomitant]
     Active Substance: PANTOPRAZOLE SODIUM
     Indication: PROPHYLAXIS
     Dosage: UNK
     Dates: start: 20210128

REACTIONS (1)
  - Delirium [Recovered/Resolved]

NARRATIVE: CASE EVENT DATE: 20210223
